FAERS Safety Report 12725179 (Version 1)
Quarter: 2016Q3

REPORT INFORMATION
  Report Type: Spontaneous
  Country: US (occurrence: US)
  Receive Date: 20160907
  Receipt Date: 20160907
  Transmission Date: 20161109
  Serious: Yes (Other)
  Sender: FDA-Public Use
  Company Number: None

PATIENT
  Age: 27 Year
  Sex: Male
  Weight: 68.85 kg

DRUGS (1)
  1. CREST PRO-HEALTH SENSITIVE SHIELD SMOOTH MINT [Suspect]
     Active Substance: STANNOUS FLUORIDE
     Indication: DENTAL CLEANING
     Route: 061
     Dates: start: 20160901, end: 20160902

REACTIONS (4)
  - Hypoaesthesia oral [None]
  - Swollen tongue [None]
  - Gingival disorder [None]
  - Tongue blistering [None]

NARRATIVE: CASE EVENT DATE: 20160901
